FAERS Safety Report 9543040 (Version 1)
Quarter: 2013Q3

REPORT INFORMATION
  Report Type: Spontaneous
  Country: TR (occurrence: TR)
  Receive Date: 20130923
  Receipt Date: 20130923
  Transmission Date: 20140515
  Serious: Yes (Other)
  Sender: FDA-Public Use
  Company Number: PHHY2013TR101501

PATIENT
  Age: 55 Year
  Sex: Male

DRUGS (3)
  1. DOCETAXEL [Suspect]
     Indication: CHEMOTHERAPY
     Dosage: 75 MG/M2, ON DAY 1
  2. CISPLATIN [Suspect]
     Dosage: 75 MG/M2, ON DAY 1
  3. 5-FLUOROURACIL [Suspect]
     Dosage: 750 MG/M2, ON DAYS 1-5

REACTIONS (2)
  - Pericarditis [Unknown]
  - Chest pain [Recovered/Resolved]
